FAERS Safety Report 18102381 (Version 1)
Quarter: 2020Q3

REPORT INFORMATION
  Report Type: Spontaneous
  Country: US (occurrence: US)
  Receive Date: 20200803
  Receipt Date: 20200803
  Transmission Date: 20201103
  Serious: Yes (Other)
  Sender: FDA-Public Use
  Company Number: US-STRIDES ARCOLAB LIMITED-2020SP006721

PATIENT
  Age: 3 Decade
  Sex: Male

DRUGS (10)
  1. AZACITIDINE. [Concomitant]
     Active Substance: AZACITIDINE
     Indication: PRODUCT USED FOR UNKNOWN INDICATION
     Dosage: 75 MILLIGRAM/SQ. METER, UNK
     Route: 065
  2. PREDNISOLONE. [Suspect]
     Active Substance: PREDNISOLONE
     Dosage: UNK, BELOW 20MG
     Route: 065
     Dates: start: 2014
  3. PREDNISOLONE. [Suspect]
     Active Substance: PREDNISOLONE
     Dosage: UNK, DOSE INCREASED
     Route: 065
     Dates: start: 2014
  4. PREDNISOLONE. [Suspect]
     Active Substance: PREDNISOLONE
     Dosage: UNK, HIGH DOSES
     Route: 065
     Dates: start: 2014
  5. PREDNISOLONE. [Suspect]
     Active Substance: PREDNISOLONE
     Dosage: UNK, RAPID TAPER
     Route: 065
     Dates: start: 2014
  6. TACROLIMUS. [Concomitant]
     Active Substance: TACROLIMUS
     Indication: CHRONIC GRAFT VERSUS HOST DISEASE
     Dosage: INCREASED DOSES (7?10 NG/ML RANGE)
     Route: 065
     Dates: start: 2014
  7. METHOTREXATE. [Concomitant]
     Active Substance: METHOTREXATE
     Indication: STEM CELL TRANSPLANT
     Dosage: UNK
     Route: 065
  8. PREDNISOLONE. [Suspect]
     Active Substance: PREDNISOLONE
     Indication: GRAFT VERSUS HOST DISEASE
     Dosage: 2 MILLIGRAM/KILOGRAM, UNK
     Route: 065
     Dates: start: 2014
  9. MYCOPHENOLATE MOFETIL. [Suspect]
     Active Substance: MYCOPHENOLATE MOFETIL
     Indication: GRAFT VERSUS HOST DISEASE
     Dosage: UNK
     Route: 065
     Dates: start: 2014
  10. TACROLIMUS. [Concomitant]
     Active Substance: TACROLIMUS
     Indication: STEM CELL TRANSPLANT
     Dosage: TAPERED DOSES (5?7 NG/ML)
     Route: 065
     Dates: start: 2014

REACTIONS (2)
  - Drug ineffective for unapproved indication [Unknown]
  - Myopathy [Recovered/Resolved]

NARRATIVE: CASE EVENT DATE: 2014
